FAERS Safety Report 7790872-5 (Version None)
Quarter: 2011Q3

REPORT INFORMATION
  Report Type: 
  Country: None (occurrence: None)
  Receive Date: 20110930
  Receipt Date: 20110921
  Transmission Date: 20111222
  Serious: Yes (Hospitalization)
  Sender: FDA-Public Use
  Company Number: US-ASTRAZENECA-2010SE51745

PATIENT
  Age: 73 Year
  Sex: Female

DRUGS (2)
  1. NEXIUM [Suspect]
     Indication: IRRITABLE BOWEL SYNDROME
     Route: 048
  2. VIMOVO [Concomitant]

REACTIONS (7)
  - COLONIC POLYP [None]
  - RECTAL POLYP [None]
  - GASTRIC POLYPS [None]
  - CIRCUMSTANCE OR INFORMATION CAPABLE OF LEADING TO MEDICATION ERROR [None]
  - DIVERTICULUM [None]
  - ABDOMINAL DISCOMFORT [None]
  - GASTRIC MUCOSA ERYTHEMA [None]
